FAERS Safety Report 8368008-1 (Version None)
Quarter: 2012Q2

REPORT INFORMATION
  Report Type: 
  Country: None (occurrence: None)
  Receive Date: 20120517
  Receipt Date: 20120509
  Transmission Date: 20120825
  Serious: Yes (Death, Other)
  Sender: FDA-Public Use
  Company Number: TR-BAXTER-2012BAX005187

PATIENT
  Age: 3 Year
  Sex: Male
  Weight: 15 kg

DRUGS (10)
  1. CIPROFLOXACIN HCL [Concomitant]
     Dosage: 2 X 75 MG
     Route: 048
  2. TRAMADOL HCL [Concomitant]
     Dosage: 4 X 15 MG
     Route: 042
  3. LEUCOVORIN CALCIUM [Concomitant]
     Dosage: 1 X 10MG
     Route: 042
  4. KIOVIG [Suspect]
     Dosage: 0.5 G/KG
     Route: 042
     Dates: start: 20120429
  5. KIOVIG [Suspect]
     Dosage: 0.5 G/KG
     Route: 042
     Dates: start: 20120507, end: 20120507
  6. ACYCLOVIR [Concomitant]
     Dosage: 5 X 300 MG
     Route: 048
  7. KYTRIL [Concomitant]
     Dosage: 1 X 0.6 MG
     Route: 042
  8. SANDIMMUNE [Concomitant]
     Dosage: 2 X 40 MG
     Route: 048
  9. FLUCONAZOLE [Concomitant]
     Dosage: 2 X 40 MG
     Route: 048
  10. VITAMIN K TAB [Concomitant]
     Dosage: 1 X 3 MG
     Route: 042

REACTIONS (4)
  - CARDIO-RESPIRATORY ARREST [None]
  - FOAMING AT MOUTH [None]
  - ANAPHYLACTIC SHOCK [None]
  - CONTUSION [None]
